FAERS Safety Report 8683437 (Version 4)
Quarter: 2012Q4

REPORT INFORMATION
  Report Type: 
  Country: US (occurrence: US)
  Receive Date: 20120726
  Receipt Date: 20120920
  Transmission Date: 20130627
  Serious: Yes (Hospitalization)
  Sender: FDA-Public Use
  Company Number: US-009507513-2012SP017433

PATIENT

DRUGS (2)
  1. NUVARING [Suspect]
     Indication: CONTRACEPTION
     Dosage: UNK
     Dates: start: 201001, end: 20100413
  2. NUVARING [Suspect]
     Indication: MIGRAINE

REACTIONS (7)
  - Rectocele repair [Unknown]
  - Deep vein thrombosis [Unknown]
  - Back pain [Unknown]
  - Anoplasty [Unknown]
  - Colitis [Unknown]
  - Asthma [Unknown]
  - Dyspnoea [Unknown]
